FAERS Safety Report 6233425-2 (Version None)
Quarter: 2009Q2

REPORT INFORMATION
  Report Type: 
  Country: None (occurrence: None)
  Receive Date: 20090616
  Receipt Date: 20090616
  Transmission Date: 20091009
  Serious: Yes (Other)
  Sender: FDA-Public Use
  Company Number: None

PATIENT
  Age: 43 Year
  Sex: Male
  Weight: 72.5755 kg

DRUGS (1)
  1. CIPROFLOXACIN HCL [Suspect]
     Indication: PROSTATITIS
     Dosage: 250 MG 2 TIMES PER DAY PO
     Route: 048
     Dates: start: 20090430, end: 20090502

REACTIONS (5)
  - BONE PAIN [None]
  - MUSCLE SPASMS [None]
  - RASH [None]
  - TENDONITIS [None]
  - WALKING DISABILITY [None]
